FAERS Safety Report 5199002-X (Version None)
Quarter: 2006Q4

REPORT INFORMATION
  Report Type: 
  Country: None (occurrence: None)
  Receive Date: 20060919
  Receipt Date: 20060728
  Transmission Date: 20070319
  Serious: No
  Sender: FDA-Public Use
  Company Number: 2006US001725

PATIENT
  Age: 73 Year
  Sex: Male

DRUGS (1)
  1. VESICARE [Suspect]
     Indication: MICTURITION URGENCY
     Dosage: 5 MG
     Dates: start: 20060727

REACTIONS (5)
  - CHEST PAIN [None]
  - FLUSHING [None]
  - HEADACHE [None]
  - MICTURITION URGENCY [None]
  - PAIN [None]
